FAERS Safety Report 20871054 (Version 1)
Quarter: 2022Q2

REPORT INFORMATION
  Report Type: Spontaneous
  Country: US (occurrence: None)
  Receive Date: 20220524
  Receipt Date: 20220524
  Transmission Date: 20220721
  Serious: Yes (Death)
  Sender: FDA-Public Use
  Company Number: None

PATIENT
  Age: 18 Year
  Sex: Male
  Weight: 40.9 kg

DRUGS (6)
  1. DARZALEX [Suspect]
     Active Substance: DARATUMUMAB
     Indication: Transplant rejection
     Dosage: 16MG/KG= 600 MG ONCE INTRAVENOUS
     Route: 042
     Dates: start: 20220423
  2. RITUXIMAB [Concomitant]
     Active Substance: RITUXIMAB
  3. METHYLPREDNISOLONE [Concomitant]
     Active Substance: METHYLPREDNISOLONE
  4. PHERESIS CATHETER [Concomitant]
  5. UNSPECIFIED INGREDIENT [Concomitant]
     Active Substance: UNSPECIFIED INGREDIENT
  6. MEPOLIZUMAB [Concomitant]
     Active Substance: MEPOLIZUMAB

REACTIONS (17)
  - Infusion related reaction [None]
  - Throat irritation [None]
  - Dyspnoea [None]
  - Oxygen saturation decreased [None]
  - Chest pain [None]
  - Chest discomfort [None]
  - Vital functions abnormal [None]
  - Hypertension [None]
  - Tachycardia [None]
  - Cardiac failure [None]
  - Hypoxia [None]
  - Pulmonary oedema [None]
  - Secretion discharge [None]
  - Multiple organ dysfunction syndrome [None]
  - Urine output decreased [None]
  - Hypovolaemic shock [None]
  - Critical illness [None]

NARRATIVE: CASE EVENT DATE: 20220423
